FAERS Safety Report 18347251 (Version 1)
Quarter: 2020Q4

REPORT INFORMATION
  Report Type: Spontaneous
  Country: US (occurrence: US)
  Receive Date: 20201006
  Receipt Date: 20201006
  Transmission Date: 20210114
  Serious: No
  Sender: FDA-Public Use
  Company Number: US-AMAG PHARMACEUTICALS, INC.-AMAG202003321

PATIENT
  Age: 29 Year
  Sex: Female
  Weight: 84.9 kg

DRUGS (1)
  1. MAKENA [Suspect]
     Active Substance: HYDROXYPROGESTERONE CAPROATE
     Indication: PREMATURE DELIVERY
     Dosage: THE PATIENT RECEIVED A TOTAL OF 4 DOSES
     Route: 058
     Dates: start: 202006, end: 202008

REACTIONS (6)
  - Inappropriate schedule of product administration [Unknown]
  - Injection site mass [Recovered/Resolved]
  - Gestational diabetes [Not Recovered/Not Resolved]
  - Presyncope [Recovered/Resolved]
  - Injection site rash [Recovered/Resolved]
  - Injection site pruritus [Recovered/Resolved]

NARRATIVE: CASE EVENT DATE: 2020
